FAERS Safety Report 8313020-1 (Version None)
Quarter: 2012Q2

REPORT INFORMATION
  Report Type: 
  Country: None (occurrence: None)
  Receive Date: 20120426
  Receipt Date: 20120417
  Transmission Date: 20120825
  Serious: Yes (Other)
  Sender: FDA-Public Use
  Company Number: US-CELGENEUS-163-21880-12041907

PATIENT
  Age: 64 Year
  Sex: Male

DRUGS (8)
  1. PERIFOSINE [Suspect]
     Route: 065
  2. CYCLOPHOSPHAMIDE [Suspect]
     Route: 065
  3. RITUXIMAB [Suspect]
     Route: 065
  4. BENDAMUSTINE [Suspect]
     Route: 065
  5. REVLIMID [Suspect]
     Route: 048
  6. FLUDARABINE PHOSPHATE [Suspect]
     Route: 065
  7. ALEMTUZUMAB [Suspect]
     Route: 065
  8. CHLORAMBUCIL [Suspect]
     Route: 065

REACTIONS (1)
  - ACUTE MYELOID LEUKAEMIA [None]
